FAERS Safety Report 8820094 (Version 3)
Quarter: 2014Q4

REPORT INFORMATION
  Report Type: Report from Study
  Country: JP (occurrence: JP)
  Receive Date: 20121001
  Receipt Date: 20141104
  Transmission Date: 20150529
  Serious: Yes (Hospitalization)
  Sender: FDA-Public Use
  Company Number: JP-009507513-1202USA00929

PATIENT
  Age: 70 Year
  Sex: Male

DRUGS (10)
  1. ZOLINZA [Suspect]
     Active Substance: VORINOSTAT
     Indication: MYCOSIS FUNGOIDES
     Dosage: 400 MG, QD
     Route: 048
     Dates: start: 20120119, end: 20120126
  2. FERROMIA [Concomitant]
     Active Substance: FERROUS CITRATE
     Indication: NEPHROGENIC ANAEMIA
     Dosage: 50 MG, QD
     Route: 048
  3. FAMOTIDINE. [Concomitant]
     Active Substance: FAMOTIDINE
     Indication: PROPHYLAXIS
     Dosage: 10 MG, QD
     Route: 048
  4. ARGAMATE JELLY [Concomitant]
     Indication: HYPERKALAEMIA
     Dosage: 25 G, TID
     Route: 048
  5. ZOLINZA [Suspect]
     Active Substance: VORINOSTAT
     Dosage: ONCE A DAY, 5 TIMES / WEEK
     Route: 048
     Dates: start: 20120313, end: 20120325
  6. TIGASON [Concomitant]
     Active Substance: ETRETINATE
     Indication: MYCOSIS FUNGOIDES
     Dosage: 10 MG, TID
     Route: 048
     Dates: start: 20110906, end: 20120928
  7. BROTIZOLAM [Concomitant]
     Active Substance: BROTIZOLAM
     Indication: INSOMNIA
     Dosage: 0.25 MG, QD
     Route: 048
  8. MINOMYCIN [Concomitant]
     Active Substance: MINOCYCLINE HYDROCHLORIDE
     Indication: SKIN ULCER
     Dosage: 50 MG, BID
     Route: 048
  9. ZOLINZA [Suspect]
     Active Substance: VORINOSTAT
     Dosage: 300 MG, QD
     Route: 048
     Dates: start: 20120214, end: 20120228
  10. CALONAL [Concomitant]
     Active Substance: ACETAMINOPHEN
     Indication: INFLAMMATION
     Dosage: 200 MG, QID
     Route: 048

REACTIONS (10)
  - Malaise [Recovering/Resolving]
  - Dehydration [Recovering/Resolving]
  - Nausea [Recovering/Resolving]
  - Nausea [Recovering/Resolving]
  - Malaise [Recovering/Resolving]
  - Renal failure [Recovering/Resolving]
  - Decreased appetite [Recovering/Resolving]
  - Renal failure [Recovering/Resolving]
  - Decreased appetite [Recovering/Resolving]
  - Dehydration [Recovering/Resolving]

NARRATIVE: CASE EVENT DATE: 20120127
